FAERS Safety Report 10991432 (Version 1)
Quarter: 2015Q2

REPORT INFORMATION
  Report Type: Spontaneous
  Country: IN (occurrence: IN)
  Receive Date: 20150406
  Receipt Date: 20150406
  Transmission Date: 20150821
  Serious: Yes (Life-Threatening, Other)
  Sender: FDA-Public Use
  Company Number: IN-PFIZER INC-2015115508

PATIENT
  Age: 26 Year
  Sex: Female

DRUGS (3)
  1. PHENYTOIN. [Interacting]
     Active Substance: PHENYTOIN
     Indication: GENERALISED TONIC-CLONIC SEIZURE
     Dosage: 300 MG, DAILY
     Route: 048
  2. FILGRASTIM [Interacting]
     Active Substance: FILGRASTIM
     Indication: NEUTROPENIA
     Dosage: 300 ?G, UNK
     Route: 058
  3. PHENYTOIN SODIUM. [Suspect]
     Active Substance: PHENYTOIN SODIUM
     Indication: GENERALISED TONIC-CLONIC SEIZURE
     Dosage: 1 G, UNK
     Route: 042

REACTIONS (2)
  - Drug interaction [Recovered/Resolved]
  - Toxic epidermal necrolysis [Recovered/Resolved]
